FAERS Safety Report 16227601 (Version 1)
Quarter: 2019Q2

REPORT INFORMATION
  Report Type: Spontaneous
  Country: BR (occurrence: BR)
  Receive Date: 20190423
  Receipt Date: 20190423
  Transmission Date: 20190711
  Serious: Yes (Other)
  Sender: FDA-Public Use
  Company Number: BR-US WORLDMEDS, LLC-USW201904-000760

PATIENT
  Age: 67 Year
  Sex: Female
  Weight: 53 kg

DRUGS (1)
  1. TEGASEROD [Suspect]
     Active Substance: TEGASEROD
     Indication: LACTOSE INTOLERANCE
     Route: 048
     Dates: start: 2009, end: 20190406

REACTIONS (6)
  - Uterine cancer [Not Recovered/Not Resolved]
  - Formication [Not Recovered/Not Resolved]
  - Contraindicated product administered [Unknown]
  - Breast cancer [Recovered/Resolved]
  - Gait disturbance [Not Recovered/Not Resolved]
  - Unintentional use for unapproved indication [Unknown]

NARRATIVE: CASE EVENT DATE: 201211
